FAERS Safety Report 21761227 (Version 1)
Quarter: 2022Q4

REPORT INFORMATION
  Report Type: Spontaneous
  Country: CN (occurrence: CN)
  Receive Date: 20221221
  Receipt Date: 20221221
  Transmission Date: 20230112
  Serious: Yes (Hospitalization)
  Sender: FDA-Public Use
  Company Number: CN-ELI_LILLY_AND_COMPANY-CN202212009072

PATIENT
  Age: 71 Year
  Sex: Male
  Weight: 60 kg

DRUGS (2)
  1. INSULIN HUMAN [Suspect]
     Active Substance: INSULIN HUMAN
     Indication: Type 2 diabetes mellitus
     Dosage: 18 U, DAILY EACH MORNING
     Route: 058
     Dates: start: 20141201, end: 20221213
  2. INSULIN HUMAN [Suspect]
     Active Substance: INSULIN HUMAN
     Dosage: 16 U, DAILY EVENING
     Route: 058
     Dates: start: 20141201, end: 20221213

REACTIONS (7)
  - Hypoglycaemic coma [Recovering/Resolving]
  - Tremor [Recovering/Resolving]
  - Diabetic encephalopathy [Recovering/Resolving]
  - Arteriosclerosis coronary artery [Recovering/Resolving]
  - Upper respiratory tract infection [Recovering/Resolving]
  - Cardiac dysfunction [Recovering/Resolving]
  - Body temperature increased [Recovering/Resolving]

NARRATIVE: CASE EVENT DATE: 20221213
